FAERS Safety Report 21134904 (Version 2)
Quarter: 2022Q3

REPORT INFORMATION
  Report Type: Report from Study
  Country: US (occurrence: None)
  Receive Date: 20220727
  Receipt Date: 20220829
  Transmission Date: 20221027
  Serious: Yes (Hospitalization, Other)
  Sender: FDA-Public Use
  Company Number: US-Merck Healthcare KGaA-9338433

PATIENT
  Sex: Male

DRUGS (2)
  1. REBIF [Suspect]
     Active Substance: INTERFERON BETA-1A
     Indication: Multiple sclerosis
     Dosage: REBIF: REBIF PREFILLED SYRINGE
     Route: 058
     Dates: start: 20070531
  2. LEVOFLOXACIN [Concomitant]
     Active Substance: LEVOFLOXACIN
     Indication: Product used for unknown indication

REACTIONS (6)
  - Colon cancer stage IV [Unknown]
  - Metastases to lung [Unknown]
  - Metastases to liver [Unknown]
  - Proctalgia [Unknown]
  - Gait inability [Unknown]
  - Limb discomfort [Unknown]
